FAERS Safety Report 5526989-5 (Version None)
Quarter: 2007Q4

REPORT INFORMATION
  Report Type: 
  Country: None (occurrence: None)
  Receive Date: 20071127
  Receipt Date: 20071123
  Transmission Date: 20080405
  Serious: Yes (Hospitalization)
  Sender: FDA-Public Use
  Company Number: FR-WYE-G00663907

PATIENT
  Age: 15 Year
  Sex: Female
  Weight: 60 kg

DRUGS (7)
  1. ADVIL LIQUI-GELS [Suspect]
     Indication: TOOTHACHE
     Dosage: 7 TO 12 TABLETS IN ONE SINGLE DOSE
     Route: 048
     Dates: start: 20070819, end: 20070819
  2. AMOXICILLIN [Suspect]
     Indication: TOOTHACHE
     Dosage: 3 TABLETS IN ONE SINGLE DOSE
     Route: 048
     Dates: start: 20070819, end: 20070819
  3. SINGULAIR [Concomitant]
     Indication: ASTHMA
     Dosage: UNSPECIFIED
  4. VENTOLIN [Concomitant]
     Indication: ASTHMA
     Dosage: UNSPECIFIED
  5. QVAR 40 [Concomitant]
     Indication: ASTHMA
     Dosage: UNSPECIFIED
  6. SURGAM [Suspect]
     Indication: TOOTHACHE
     Dosage: 3 TABLETS IN ONE SINGLE DOSE
     Route: 048
     Dates: start: 20070819, end: 20070819
  7. ACETAMINOPHEN [Suspect]
     Indication: TOOTHACHE
     Dosage: 1 TABLET IN ONE SINGLE DOSE
     Route: 048
     Dates: start: 20070819, end: 20070819

REACTIONS (3)
  - ABDOMINAL PAIN UPPER [None]
  - ACCIDENTAL OVERDOSE [None]
  - INCORRECT DOSE ADMINISTERED [None]
